FAERS Safety Report 12894620 (Version 3)
Quarter: 2016Q4

REPORT INFORMATION
  Report Type: Spontaneous
  Country: ET (occurrence: ET)
  Receive Date: 20161028
  Receipt Date: 20161129
  Transmission Date: 20170207
  Serious: Yes (Death, Other)
  Sender: FDA-Public Use
  Company Number: ET-PFIZER INC-2016500885

PATIENT
  Age: 3 Year
  Sex: Male
  Weight: 12 kg

DRUGS (1)
  1. ZITHROMAX [Suspect]
     Active Substance: AZITHROMYCIN DIHYDRATE
     Indication: PROPHYLAXIS
     Dosage: 1 TABLET (250MG), SINGLE DOSE
     Route: 048
     Dates: start: 20160924, end: 20160924

REACTIONS (3)
  - Choking [Fatal]
  - Drug administered to patient of inappropriate age [Fatal]
  - Aspiration [Fatal]

NARRATIVE: CASE EVENT DATE: 20160924
